FAERS Safety Report 15858577 (Version 3)
Quarter: 2019Q1

REPORT INFORMATION
  Report Type: Spontaneous
  Country: FR (occurrence: FR)
  Receive Date: 20190123
  Receipt Date: 20190305
  Transmission Date: 20190417
  Serious: Yes (Hospitalization, Other)
  Sender: FDA-Public Use
  Company Number: FR-INCYTE CORPORATION-2019IN000331

PATIENT

DRUGS (3)
  1. JAKAVI [Suspect]
     Active Substance: RUXOLITINIB
     Indication: MYELOFIBROSIS
     Dosage: 20 MG, QD (1X/DAY)
     Route: 048
     Dates: start: 20150219
  2. RETACRIT [Suspect]
     Active Substance: EPOETIN ALFA-EPBX
     Indication: MYELOFIBROSIS
     Dosage: 20000 IU, QW
     Route: 058
     Dates: start: 20180525
  3. JAKAVI [Suspect]
     Active Substance: RUXOLITINIB
     Dosage: 10 MG, QD (5 MG, 2X/DAY)
     Route: 065
     Dates: start: 2017, end: 20181212

REACTIONS (2)
  - Congestive cardiomyopathy [Recovering/Resolving]
  - Stress cardiomyopathy [Recovered/Resolved]

NARRATIVE: CASE EVENT DATE: 20181220
